FAERS Safety Report 18272046 (Version 1)
Quarter: 2020Q3

REPORT INFORMATION
  Report Type: Spontaneous
  Country: US (occurrence: US)
  Receive Date: 20200916
  Receipt Date: 20200916
  Transmission Date: 20201103
  Serious: No
  Sender: FDA-Public Use
  Company Number: US-SHIRE-US202030132

PATIENT
  Age: 10 Year
  Sex: Female

DRUGS (1)
  1. VPRIV [Suspect]
     Active Substance: VELAGLUCERASE ALFA
     Indication: GAUCHER^S DISEASE
     Dosage: 4 DOSAGE FORM, 2X A WEEK
     Route: 042
     Dates: start: 20190218

REACTIONS (3)
  - Back pain [Unknown]
  - Pain in extremity [Unknown]
  - Abdominal pain upper [Unknown]
